APPROVED DRUG PRODUCT: HYDRALAZINE HYDROCHLORIDE
Active Ingredient: HYDRALAZINE HYDROCHLORIDE
Strength: 20MG/ML
Dosage Form/Route: INJECTABLE;INJECTION
Application: A204680 | Product #001
Applicant: PHARMOBEDIENT CONSULTING LLC
Approved: Apr 28, 2016 | RLD: No | RS: No | Type: DISCN